FAERS Safety Report 5266588-6 (Version None)
Quarter: 2007Q1

REPORT INFORMATION
  Report Type: 
  Country: None (occurrence: None)
  Receive Date: 20070315
  Receipt Date: 20070305
  Transmission Date: 20070707
  Serious: Yes (Death, Hospitalization)
  Sender: FDA-Public Use
  Company Number: BR-PFIZER INC-2007014705

PATIENT
  Sex: Female
  Weight: 45.8 kg

DRUGS (16)
  1. SU-011,248 [Suspect]
     Indication: METASTATIC RENAL CELL CARCINOMA
     Route: 048
     Dates: start: 20061201, end: 20070208
  2. AMLODIPINE [Concomitant]
     Route: 048
  3. AMIODARONE HCL [Concomitant]
     Route: 048
  4. ALENDRONATE SODIUM [Concomitant]
     Route: 048
  5. OMEPRAZOLE [Concomitant]
     Route: 048
  6. MORPHINE SULFATE [Concomitant]
     Route: 048
  7. OSCAL [Concomitant]
     Route: 048
  8. SERETIDE [Concomitant]
     Route: 055
  9. COMBIVENT [Concomitant]
     Route: 055
  10. TIOTROPIUM BROMIDE [Concomitant]
     Route: 055
  11. HYDROCHLOROTHIAZIDE [Concomitant]
     Route: 048
  12. IPRATROPIUM BROMIDE [Concomitant]
     Route: 055
  13. ONDANSETRON [Concomitant]
     Route: 042
     Dates: start: 20070207, end: 20070207
  14. RANITIDINE [Concomitant]
     Route: 042
     Dates: start: 20070207, end: 20070207
  15. BROMOPRIDE [Concomitant]
     Route: 048
  16. VITAMIN B COMPLEX CAP [Concomitant]
     Route: 042
     Dates: start: 20070207, end: 20070207

REACTIONS (3)
  - ARRHYTHMIA [None]
  - RENAL FAILURE ACUTE [None]
  - RESPIRATORY FAILURE [None]
